FAERS Safety Report 5961314-7 (Version None)
Quarter: 2008Q4

REPORT INFORMATION
  Report Type: 
  Country: None (occurrence: None)
  Receive Date: 20081121
  Receipt Date: 20081112
  Transmission Date: 20090506
  Serious: Yes (Hospitalization)
  Sender: FDA-Public Use
  Company Number: US-AMGEN-QUU314724

PATIENT
  Sex: Male

DRUGS (2)
  1. ENBREL [Suspect]
     Indication: RHEUMATOID ARTHRITIS
     Route: 058
     Dates: start: 20000101
  2. PREDNISOLONE [Concomitant]

REACTIONS (3)
  - FEMUR FRACTURE [None]
  - HYPERTENSION [None]
  - RHEUMATOID ARTHRITIS [None]
